FAERS Safety Report 8622799-0 (Version None)
Quarter: 2012Q3

REPORT INFORMATION
  Report Type: 
  Country: None (occurrence: None)
  Receive Date: 20120813
  Receipt Date: 20120802
  Transmission Date: 20120928
  Serious: Yes (Hospitalization, Other)
  Sender: FDA-Public Use
  Company Number: 2012032973

PATIENT
  Age: 20 Year
  Sex: Female

DRUGS (3)
  1. VIVAGLOBIN [Suspect]
     Indication: IMMUNODEFICIENCY COMMON VARIABLE
     Dosage: (WEEKLY SUBCUTANEOUS)
     Route: 058
  2. ETHINYL ESTRADIOL TAB [Concomitant]
  3. DROSPIRENONE (DROSPIRENONE) [Concomitant]

REACTIONS (3)
  - HAEMORRHAGIC CEREBRAL INFARCTION [None]
  - INTRACRANIAL VENOUS SINUS THROMBOSIS [None]
  - SUPERIOR SAGITTAL SINUS THROMBOSIS [None]
